FAERS Safety Report 6975267-6 (Version None)
Quarter: 2010Q3

REPORT INFORMATION
  Report Type: 
  Country: None (occurrence: None)
  Receive Date: 20100910
  Receipt Date: 20090227
  Transmission Date: 20110219
  Serious: No
  Sender: FDA-Public Use
  Company Number: US-WYE-H08423409

PATIENT
  Sex: Male
  Weight: 102.15 kg

DRUGS (4)
  1. PRISTIQ [Suspect]
     Indication: DEPRESSION
     Route: 048
     Dates: start: 20090226
  2. DETROL [Concomitant]
  3. IBUPROFEN [Concomitant]
  4. AVALIDE [Concomitant]

REACTIONS (4)
  - APHASIA [None]
  - FEELING ABNORMAL [None]
  - FEELING DRUNK [None]
  - YAWNING [None]
